FAERS Safety Report 7813481-8 (Version None)
Quarter: 2011Q4

REPORT INFORMATION
  Report Type: 
  Country: None (occurrence: None)
  Receive Date: 20111014
  Receipt Date: 20111010
  Transmission Date: 20120403
  Serious: No
  Sender: FDA-Public Use
  Company Number: US-BIOGENIDEC-2011BI035133

PATIENT
  Age: 28 Year
  Sex: Female

DRUGS (2)
  1. VITAMIN D [Concomitant]
     Indication: PRODUCT USED FOR UNKNOWN INDICATION
  2. TYSABRI [Suspect]
     Indication: MULTIPLE SCLEROSIS
     Route: 042
     Dates: start: 20100608, end: 20110501

REACTIONS (8)
  - SICK BUILDING SYNDROME [None]
  - MIGRAINE [None]
  - LOSS OF CONSCIOUSNESS [None]
  - DEAFNESS UNILATERAL [None]
  - HEARING IMPAIRED [None]
  - MULTIPLE SCLEROSIS [None]
  - DIZZINESS [None]
  - VISION BLURRED [None]
